FAERS Safety Report 18189602 (Version 3)
Quarter: 2020Q3

REPORT INFORMATION
  Report Type: Spontaneous
  Country: US (occurrence: US)
  Receive Date: 20200824
  Receipt Date: 20200902
  Transmission Date: 20201103
  Serious: No
  Sender: FDA-Public Use
  Company Number: US-GLAXOSMITHKLINE-US2020AMR165308

PATIENT
  Sex: Female

DRUGS (1)
  1. ZEJULA [Suspect]
     Active Substance: NIRAPARIB
     Indication: OVARIAN CANCER
     Dosage: 200 MG, QD (2 CAPSULES)
     Route: 048
     Dates: start: 20200804

REACTIONS (7)
  - Dry mouth [Unknown]
  - Rash pruritic [Recovering/Resolving]
  - Pollakiuria [Unknown]
  - Constipation [Unknown]
  - Platelet count decreased [Unknown]
  - Haemoglobin decreased [Unknown]
  - Pruritus [Unknown]
